FAERS Safety Report 8431582-0 (Version None)
Quarter: 2012Q2

REPORT INFORMATION
  Report Type: 
  Country: None (occurrence: None)
  Receive Date: 20120607
  Receipt Date: 20120607
  Transmission Date: 20120825
  Serious: Yes (Other)
  Sender: FDA-Public Use
  Company Number: None

PATIENT
  Sex: Male
  Weight: 81.6475 kg

DRUGS (2)
  1. FUROSEMIDE [Suspect]
     Indication: PRODUCT USED FOR UNKNOWN INDICATION
     Dosage: 1 TAB TWICE A DAY BY MOUTH
     Route: 048
     Dates: start: 20120103
  2. DIGOXIN [Suspect]
     Indication: HEART RATE IRREGULAR
     Dosage: 1 TAB BY MOUTH EVERY DAY BY MOUTH
     Route: 048
     Dates: start: 20120103

REACTIONS (4)
  - DIARRHOEA [None]
  - VISION BLURRED [None]
  - RENAL DISORDER [None]
  - CONFUSIONAL STATE [None]
